FAERS Safety Report 9425654 (Version 1)
Quarter: 2013Q3

REPORT INFORMATION
  Report Type: Spontaneous
  Country: US (occurrence: US)
  Receive Date: 20130729
  Receipt Date: 20130729
  Transmission Date: 20140515
  Serious: Yes (Other)
  Sender: FDA-Public Use
  Company Number: US-WATSON-2013-11447

PATIENT
  Sex: Male
  Weight: 125 kg

DRUGS (2)
  1. RAPAFLO (WATSON LABORATORIES) [Suspect]
     Indication: URINARY RETENTION
     Dosage: ONE CAPSULE QHS AFTER MEAL
     Route: 048
     Dates: start: 20130619
  2. RAPAFLO (WATSON LABORATORIES) [Suspect]
     Dosage: ONE 8 MG CAPSULE QHS AFTER MEAL
     Route: 048
     Dates: start: 201306, end: 20130617

REACTIONS (5)
  - Urinary retention [Recovering/Resolving]
  - Nausea [Recovered/Resolved]
  - Dizziness postural [Recovered/Resolved]
  - Heart rate increased [Recovered/Resolved]
  - Pollakiuria [Recovering/Resolving]
